FAERS Safety Report 25061304 (Version 1)
Quarter: 2025Q1

REPORT INFORMATION
  Report Type: Report from Study
  Country: US (occurrence: US)
  Receive Date: 20250311
  Receipt Date: 20250311
  Transmission Date: 20250409
  Serious: Yes (Hospitalization, Other)
  Sender: ABBVIE
  Company Number: US-ABBVIE-6162587

PATIENT
  Age: 87 Year
  Sex: Male

DRUGS (1)
  1. RINVOQ [Suspect]
     Active Substance: UPADACITINIB
     Indication: Rheumatoid arthritis
     Route: 048
     Dates: start: 20230101

REACTIONS (8)
  - Hip arthroplasty [Unknown]
  - Fall [Unknown]
  - Loss of consciousness [Unknown]
  - Orthostatic hypotension [Unknown]
  - Dizziness [Unknown]
  - Syncope [Unknown]
  - Hypertension [Unknown]
  - Hypotension [Unknown]

NARRATIVE: CASE EVENT DATE: 20241027
